FAERS Safety Report 6853063-8 (Version None)
Quarter: 2010Q3

REPORT INFORMATION
  Report Type: 
  Country: None (occurrence: None)
  Receive Date: 20100717
  Receipt Date: 20071228
  Transmission Date: 20110219
  Serious: Yes (Other)
  Sender: FDA-Public Use
  Company Number: US-PFIZER INC-2007099871

PATIENT
  Sex: Female
  Weight: 62.727 kg

DRUGS (7)
  1. CHANTIX [Suspect]
     Indication: SMOKING CESSATION THERAPY
     Dates: start: 20071115
  2. CHANTIX [Suspect]
     Indication: TOBACCO ABUSE
  3. SYNTHROID [Concomitant]
     Dates: start: 20040101
  4. TOPROL-XL [Concomitant]
     Indication: HYPERTENSION
     Dates: start: 20040101
  5. EFFEXOR [Concomitant]
     Indication: DEPRESSION
     Dates: start: 20040101
  6. EVISTA [Concomitant]
     Indication: HYPOTHYROIDISM
     Dates: start: 20040101
  7. ACETYLSALICYLIC ACID [Concomitant]
     Dates: start: 20040101

REACTIONS (3)
  - ASTHENIA [None]
  - NAUSEA [None]
  - SYNCOPE [None]
